FAERS Safety Report 9799967 (Version 1)
Quarter: 2014Q1

REPORT INFORMATION
  Report Type: Spontaneous
  Country: US (occurrence: US)
  Receive Date: 20140106
  Receipt Date: 20140106
  Transmission Date: 20141002
  Serious: No
  Sender: FDA-Public Use
  Company Number: US-GILEAD-2010-0030300

PATIENT
  Age: 82 Year
  Sex: Female

DRUGS (15)
  1. LETAIRIS [Suspect]
     Indication: PULMONARY ARTERIAL HYPERTENSION
     Route: 048
  2. ANUCORT HC [Concomitant]
  3. NIFEDIPINE [Concomitant]
  4. FOLGARD [Concomitant]
  5. CALTRATE 600 + D [Concomitant]
  6. THEOPHYLLINE [Concomitant]
  7. AMITIZA [Concomitant]
  8. TRIAMTERINE [Concomitant]
  9. ALLOPURINOL [Concomitant]
  10. TYLENOL [Concomitant]
  11. PRILOSEC [Concomitant]
  12. TRENTAL CR [Concomitant]
  13. FLOVENT [Concomitant]
  14. LIBRIUM [Concomitant]
  15. ATROVENT [Concomitant]

REACTIONS (1)
  - Musculoskeletal chest pain [Not Recovered/Not Resolved]
